FAERS Safety Report 9013335 (Version 1)
Quarter: 2013Q1

REPORT INFORMATION
  Report Type: Spontaneous
  Country: US (occurrence: None)
  Receive Date: 20130107
  Receipt Date: 20130107
  Transmission Date: 20140127
  Serious: Yes (Other)
  Sender: FDA-Public Use
  Company Number: None

PATIENT
  Age: 50 Year
  Sex: Female

DRUGS (2)
  1. BLISTEX FIVE STAR [Suspect]
     Indication: CHAPPED LIPS
     Dosage: TWO SWIPES ACROSS LIPS, 5 TIMES DAILY, CUTANEOUS
     Route: 003
     Dates: start: 20120907, end: 20121005
  2. BLISTEX [Suspect]
     Indication: ORAL HERPES
     Dosage: TWO SWIPES ACROSS LIPS, 5 TIMES DAILY, CUTANEOUS
     Route: 003
     Dates: start: 20120920, end: 20121012

REACTIONS (4)
  - Oral herpes [None]
  - Wound haemorrhage [None]
  - Scar [None]
  - Product contamination microbial [None]
